FAERS Safety Report 17599010 (Version 1)
Quarter: 2020Q1

REPORT INFORMATION
  Report Type: Spontaneous
  Country: US (occurrence: US)
  Receive Date: 20200330
  Receipt Date: 20200330
  Transmission Date: 20200409
  Serious: No
  Sender: FDA-Public Use
  Company Number: None

PATIENT
  Age: 62 Year
  Sex: Female
  Weight: 84.6 kg

DRUGS (7)
  1. CARBOPLATIN. [Suspect]
     Active Substance: CARBOPLATIN
     Indication: ENDOMETRIAL CANCER
     Dosage: ?          OTHER FREQUENCY:X1;?
     Route: 042
     Dates: start: 20200324, end: 20200324
  2. PACLITAXEL 255MG IVPB [Concomitant]
     Dates: start: 20200324, end: 20200324
  3. DEXAMETHASONE 10MG IVPB [Concomitant]
     Dates: start: 20200324, end: 20200324
  4. FAMOTIDINE 20MG IVPB [Concomitant]
     Dates: start: 20200324, end: 20200324
  5. DIPHENHYDRAMINE 25MG IVPB [Concomitant]
     Dates: start: 20200324, end: 20200324
  6. EMEND 150MG IVPB [Concomitant]
     Dates: start: 20200324, end: 20200324
  7. GRANISETRON 1MG IVPB [Concomitant]
     Dates: start: 20200324, end: 20200324

REACTIONS (3)
  - Abdominal pain [None]
  - Nausea [None]
  - Flushing [None]

NARRATIVE: CASE EVENT DATE: 20200324
